FAERS Safety Report 9463281 (Version 1)
Quarter: 2013Q3

REPORT INFORMATION
  Report Type: Spontaneous
  Country: FR (occurrence: FR)
  Receive Date: 20130819
  Receipt Date: 20130819
  Transmission Date: 20140515
  Serious: Yes (Life-Threatening)
  Sender: FDA-Public Use
  Company Number: FR-ROCHE-1261875

PATIENT
  Age: 62 Year
  Sex: Male

DRUGS (8)
  1. MABTHERA [Suspect]
     Indication: LUPUS-LIKE SYNDROME
     Route: 042
     Dates: start: 20100318
  2. MABTHERA [Suspect]
     Dosage: SECOND CYCLE
     Route: 042
     Dates: start: 20101007
  3. MABTHERA [Suspect]
     Dosage: THIRD CYCLE
     Route: 042
     Dates: start: 20110223, end: 20110223
  4. PLAQUENIL [Suspect]
     Indication: LUPUS-LIKE SYNDROME
     Dosage: LONG-TERM TREATMENT
     Route: 048
  5. PREVISCAN (FRANCE) [Suspect]
     Indication: ATRIAL FIBRILLATION
     Dosage: LONG-TERM TREATMENT
     Route: 048
  6. CARDENSIEL [Suspect]
     Indication: PRODUCT USED FOR UNKNOWN INDICATION
     Dosage: LONG-TERM TREATMENT
     Route: 048
  7. KALEORID [Suspect]
     Indication: PRODUCT USED FOR UNKNOWN INDICATION
     Dosage: LONG-TERM TREATMENT
     Route: 048
  8. INEXIUM [Suspect]
     Indication: ULCER
     Dosage: LONG-TERM TREATMENT
     Route: 048

REACTIONS (3)
  - Hepatitis B [Recovered/Resolved with Sequelae]
  - Hepatic encephalopathy [Recovered/Resolved with Sequelae]
  - Hepatic failure [Recovered/Resolved with Sequelae]
